FAERS Safety Report 13338343 (Version 2)
Quarter: 2017Q1

REPORT INFORMATION
  Report Type: Report from Study
  Country: BR (occurrence: BR)
  Receive Date: 20170315
  Receipt Date: 20170321
  Transmission Date: 20170428
  Serious: Yes (Death, Other)
  Sender: FDA-Public Use
  Company Number: BR-ALEXION-A201702261

PATIENT
  Age: 2 Year
  Sex: Female
  Weight: 11.7 kg

DRUGS (5)
  1. SOLIRIS [Suspect]
     Active Substance: ECULIZUMAB
     Indication: HAEMOLYTIC URAEMIC SYNDROME
     Dosage: 600 MG, QW
     Route: 042
     Dates: start: 20170222
  2. CEFTRIAXONE. [Concomitant]
     Active Substance: CEFTRIAXONE
     Indication: ANTIBIOTIC THERAPY
     Dosage: 100 MG/KG, SINGLE
     Route: 065
  3. OXACILLIN [Concomitant]
     Active Substance: OXACILLIN SODIUM
     Indication: ANTIBIOTIC THERAPY
     Dosage: 200 MG/KG, SINGLE
     Route: 065
  4. SOLIRIS [Suspect]
     Active Substance: ECULIZUMAB
     Dosage: 300 MG, QW
     Route: 042
     Dates: start: 20170302, end: 20170302
  5. OMEPRAZOLE. [Concomitant]
     Active Substance: OMEPRAZOLE
     Indication: GASTROINTESTINAL DISORDER
     Dosage: 2 MG/KG, QD
     Route: 065

REACTIONS (17)
  - Anuria [Unknown]
  - Neurological symptom [Unknown]
  - Hepatic function abnormal [Fatal]
  - Pallor [Unknown]
  - Metabolic acidosis [Fatal]
  - Blood triglycerides increased [Unknown]
  - Infection [Unknown]
  - Hypertension [Unknown]
  - Renal failure [Fatal]
  - Anaemia [Unknown]
  - Cholestasis [Not Recovered/Not Resolved]
  - Intestinal haemorrhage [Fatal]
  - Pneumonia [Unknown]
  - Blood lactate dehydrogenase increased [Not Recovered/Not Resolved]
  - Multiple organ dysfunction syndrome [Fatal]
  - Hypovolaemic shock [Fatal]
  - Thrombocytopenia [Fatal]

NARRATIVE: CASE EVENT DATE: 20170305
